FAERS Safety Report 7062142-4 (Version None)
Quarter: 2010Q4

REPORT INFORMATION
  Report Type: 
  Country: None (occurrence: None)
  Receive Date: 20101026
  Receipt Date: 20101018
  Transmission Date: 20110411
  Serious: Yes (Other)
  Sender: FDA-Public Use
  Company Number: PHHO2010DE15766

PATIENT
  Sex: Female
  Weight: 85 kg

DRUGS (6)
  1. AFINITOR [Suspect]
     Indication: NEUROENDOCRINE TUMOUR
     Dosage: 10 MG / DAY
     Route: 048
     Dates: start: 20090812, end: 20091120
  2. AFINITOR [Suspect]
     Dosage: 10 MG / DAY
     Route: 048
     Dates: start: 20091201, end: 20100421
  3. RAMIPRIL [Concomitant]
     Indication: HYPERTENSION
  4. BISOPROLOL [Concomitant]
     Indication: HYPERTENSION
     Dosage: UNK
     Dates: start: 20100901
  5. CHLORMADINONE ACETATE TAB [Concomitant]
     Indication: MENSTRUATION IRREGULAR
     Dosage: UNK
     Dates: start: 20101001
  6. TAMIFLU [Concomitant]
     Indication: H1N1 INFLUENZA
     Dosage: UNK
     Dates: start: 20091120, end: 20091124

REACTIONS (3)
  - ATELECTASIS [None]
  - LUNG INFILTRATION [None]
  - PNEUMONITIS [None]
